FAERS Safety Report 9530835 (Version 1)
Quarter: 2013Q3

REPORT INFORMATION
  Report Type: Spontaneous
  Country: US (occurrence: US)
  Receive Date: 20130918
  Receipt Date: 20130918
  Transmission Date: 20140515
  Serious: Yes (Other)
  Sender: FDA-Public Use
  Company Number: US-ASTRAZENECA-2013SE68696

PATIENT
  Age: 67 Year
  Sex: Male

DRUGS (2)
  1. BRILINTA [Suspect]
     Indication: ACUTE MYOCARDIAL INFARCTION
     Route: 048
     Dates: start: 20130910, end: 20130911
  2. LIPITOR [Concomitant]

REACTIONS (2)
  - Thrombosis [Recovered/Resolved]
  - Acute myocardial infarction [Recovered/Resolved]
